FAERS Safety Report 8009878-6 (Version None)
Quarter: 2011Q4

REPORT INFORMATION
  Report Type: 
  Country: None (occurrence: None)
  Receive Date: 20111228
  Receipt Date: 20111219
  Transmission Date: 20120403
  Serious: Yes (Hospitalization)
  Sender: FDA-Public Use
  Company Number: US-BAYER-2011-050392

PATIENT
  Age: 23 Year
  Sex: Female
  Weight: 75 kg

DRUGS (15)
  1. YAZ [Suspect]
  2. PROVENTIL [Concomitant]
     Dosage: UNK
     Route: 055
     Dates: start: 20070101
  3. VITAMIN C [Concomitant]
     Dosage: UNK UNK, PRN
  4. ZYRTEC [Concomitant]
     Dosage: UNK
     Dates: start: 20020101
  5. ASPIRIN [Concomitant]
     Dosage: 81 MG, DAILY
     Route: 048
  6. YAZ [Suspect]
     Indication: PREMENSTRUAL SYNDROME
  7. ACETAMINOPHEN [Concomitant]
     Dosage: 2 PILLS, PRN
  8. ACIPHEX [Concomitant]
     Dosage: 20 MG, 30 MINUTES BEFORE BREAKFAST
     Route: 048
  9. YAZ [Suspect]
     Indication: CONTRACEPTION
     Dosage: UNK
     Route: 048
     Dates: start: 20050101, end: 20090101
  10. ALKA SELTZER [Concomitant]
     Dosage: AS NEEDED
     Route: 048
  11. IBUPROFEN [Concomitant]
     Dosage: 1-2 PILLS, PRN
  12. PEPCID [Concomitant]
     Dosage: AS NEEDED
     Route: 048
  13. YAZ [Suspect]
     Indication: ACNE
  14. REGLAN [Concomitant]
     Dosage: 10 MG, TID
     Route: 048
  15. BENTYL [Concomitant]
     Dosage: 20 MG, TID, AS NEEDED
     Route: 048

REACTIONS (3)
  - INJURY [None]
  - PAIN [None]
  - BILIARY DYSKINESIA [None]
